FAERS Safety Report 6608700-X (Version None)
Quarter: 2010Q1

REPORT INFORMATION
  Report Type: 
  Country: None (occurrence: None)
  Receive Date: 20100301
  Receipt Date: 20100218
  Transmission Date: 20100710
  Serious: Yes (Life-Threatening)
  Sender: FDA-Public Use
  Company Number: NL-BAXTER-2010BH004649

PATIENT
  Age: 60 Year
  Sex: Male
  Weight: 94 kg

DRUGS (1)
  1. ENDOXAN BAXTER [Suspect]
     Indication: STEM CELL TRANSPLANT
     Dosage: HIGH-DOSE
     Route: 042
     Dates: start: 20100101

REACTIONS (3)
  - CARDIAC ASTHMA [None]
  - CARDIOGENIC SHOCK [None]
  - MULTI-ORGAN FAILURE [None]
